FAERS Safety Report 18815932 (Version 1)
Quarter: 2021Q1

REPORT INFORMATION
  Report Type: Spontaneous
  Country: US (occurrence: US)
  Receive Date: 20210201
  Receipt Date: 20210201
  Transmission Date: 20210419
  Serious: Yes (Life-Threatening, Hospitalization)
  Sender: FDA-Public Use
  Company Number: US-MYLANLABS-2021M1005459

PATIENT
  Age: 77 Year
  Sex: Male

DRUGS (5)
  1. MIDAZOLAM. [Concomitant]
     Active Substance: MIDAZOLAM
     Indication: PREMEDICATION
     Dosage: 2 MILLIGRAM
     Route: 042
  2. KETAMINE [Suspect]
     Active Substance: KETAMINE
     Indication: PREMEDICATION
     Dosage: 20 MILLIGRAM
     Route: 042
  3. PROPOFOL. [Concomitant]
     Active Substance: PROPOFOL
     Indication: ANAESTHESIA PROCEDURE
     Dosage: 80 MILLIGRAM ADMINISTERED...
     Route: 040
  4. REMIFENTANIL [Suspect]
     Active Substance: REMIFENTANIL
     Indication: MAINTENANCE OF ANAESTHESIA
     Dosage: 0.1 MICROGRAM/KILOGRAM, QMINUTE...
     Route: 042
  5. PROPOFOL. [Concomitant]
     Active Substance: PROPOFOL
     Indication: MAINTENANCE OF ANAESTHESIA
     Dosage: 80 MICROGRAM/KILOGRAM, QMINUTE...
     Route: 042

REACTIONS (3)
  - Cardiac arrest [Recovering/Resolving]
  - Bradycardia [Recovering/Resolving]
  - Trigemino-cardiac reflex [Recovering/Resolving]
